FAERS Safety Report 19062535 (Version 1)
Quarter: 2021Q1

REPORT INFORMATION
  Report Type: Spontaneous
  Country: US (occurrence: US)
  Receive Date: 20210326
  Receipt Date: 20210326
  Transmission Date: 20210420
  Serious: Yes (Disabling)
  Sender: FDA-Public Use
  Company Number: None

PATIENT
  Age: 31 Year
  Sex: Female
  Weight: 88.27 kg

DRUGS (2)
  1. LILETTA [Suspect]
     Active Substance: LEVONORGESTREL
     Dates: start: 20170720, end: 20210312
  2. NATURE^S WAY ALIVE WOMEN^S ENERGY MULTIVITAMIN [Concomitant]

REACTIONS (18)
  - Depression [None]
  - Insomnia [None]
  - Blood glucose decreased [None]
  - Eczema [None]
  - Headache [None]
  - Vomiting [None]
  - Back pain [None]
  - Hair growth abnormal [None]
  - Acne [None]
  - Pain [None]
  - Libido decreased [None]
  - Alopecia [None]
  - Nausea [None]
  - Anxiety [None]
  - Menorrhagia [None]
  - Weight increased [None]
  - Mood swings [None]
  - Fungal infection [None]

NARRATIVE: CASE EVENT DATE: 20170720
